FAERS Safety Report 7065109-5 (Version None)
Quarter: 2010Q4

REPORT INFORMATION
  Report Type: 
  Country: None (occurrence: None)
  Receive Date: 20101027
  Receipt Date: 20101015
  Transmission Date: 20110411
  Serious: Yes (Death, Other)
  Sender: FDA-Public Use
  Company Number: FR-GENZYME-CAMP-1001024

PATIENT
  Sex: Female

DRUGS (2)
  1. CAMPATH [Suspect]
     Indication: CHRONIC LYMPHOCYTIC LEUKAEMIA RECURRENT
     Dosage: 30 MG, 3X/W
     Route: 058
     Dates: start: 20100614, end: 20100709
  2. ANTIBIOTICS [Suspect]
     Indication: PRODUCT USED FOR UNKNOWN INDICATION

REACTIONS (7)
  - CHOLECYSTITIS [None]
  - HYPERTHERMIA [None]
  - JAUNDICE [None]
  - LIVER FUNCTION TEST ABNORMAL [None]
  - LYMPHOPENIA [None]
  - RENAL FAILURE ACUTE [None]
  - SEPTIC SHOCK [None]
